FAERS Safety Report 22036972 (Version 2)
Quarter: 2023Q2

REPORT INFORMATION
  Report Type: Report from Study
  Country: US (occurrence: US)
  Receive Date: 20230225
  Receipt Date: 20230405
  Transmission Date: 20230721
  Serious: Yes (Death, Other)
  Sender: FDA-Public Use
  Company Number: US-BoehringerIngelheim-2023-BI-220996

PATIENT
  Age: 88 Year
  Sex: Male
  Weight: 64 kg

DRUGS (8)
  1. NINTEDANIB [Suspect]
     Active Substance: NINTEDANIB
     Indication: Idiopathic pulmonary fibrosis
     Route: 048
     Dates: start: 201808, end: 202202
  2. STIOLTO RESPIMAT [Concomitant]
     Active Substance: OLODATEROL HYDROCHLORIDE\TIOTROPIUM BROMIDE MONOHYDRATE
     Indication: Chronic obstructive pulmonary disease
     Dosage: 2.5-2.5 MCG
     Route: 055
     Dates: start: 201801
  3. ASPIRIN [Concomitant]
     Active Substance: ASPIRIN
     Indication: Coronary artery disease
     Route: 048
  4. COREG [Concomitant]
     Active Substance: CARVEDILOL
     Indication: Chronic left ventricular failure
     Route: 048
  5. ZOCOR [Concomitant]
     Active Substance: SIMVASTATIN
     Indication: Coronary artery disease
     Route: 048
  6. ENTRESTO [Concomitant]
     Active Substance: SACUBITRIL\VALSARTAN
     Indication: Chronic left ventricular failure
     Dosage: 49MG/51MG
     Route: 048
     Dates: start: 20210906
  7. FUROSEMIDE [Concomitant]
     Active Substance: FUROSEMIDE
     Indication: Chronic left ventricular failure
     Route: 048
     Dates: start: 202009
  8. NITROGLYCERIN [Concomitant]
     Active Substance: NITROGLYCERIN
     Indication: Chest pain
     Dosage: PRN
     Route: 060
     Dates: start: 202011

REACTIONS (3)
  - Respiratory failure [Fatal]
  - Idiopathic pulmonary fibrosis [Fatal]
  - Chronic obstructive pulmonary disease [Fatal]

NARRATIVE: CASE EVENT DATE: 20220101
